FAERS Safety Report 23312959 (Version 2)
Quarter: 2023Q4

REPORT INFORMATION
  Report Type: Report from Study
  Country: KR (occurrence: KR)
  Receive Date: 20231219
  Receipt Date: 20231219
  Transmission Date: 20240110
  Serious: Yes (Hospitalization, Other)
  Sender: FDA-Public Use
  Company Number: KR-002147023-NVSC2023KR261999

PATIENT
  Sex: Male
  Weight: 88.4 kg

DRUGS (52)
  1. RYDAPT [Suspect]
     Active Substance: MIDOSTAURIN
     Indication: Acute myeloid leukaemia
     Dosage: 50 MG
     Route: 048
     Dates: start: 20230531
  2. DAUNORUBICIN [Concomitant]
     Active Substance: DAUNORUBICIN
     Indication: Acute myeloid leukaemia
     Dosage: 136 MG
     Route: 065
     Dates: start: 20230524, end: 20230526
  3. CYTARABINE [Concomitant]
     Active Substance: CYTARABINE
     Indication: Acute myeloid leukaemia
     Dosage: 228 MG
     Route: 065
     Dates: start: 20230524, end: 20230529
  4. CYTARABINE [Concomitant]
     Active Substance: CYTARABINE
     Dosage: 13200 MG (EOD)
     Route: 065
     Dates: start: 20230718, end: 20230722
  5. CYTARABINE [Concomitant]
     Active Substance: CYTARABINE
     Dosage: 12600 MG (EOD)
     Route: 065
     Dates: start: 20230904, end: 20230908
  6. CYTARABINE [Concomitant]
     Active Substance: CYTARABINE
     Dosage: 12600 MG (EOD)
     Route: 065
     Dates: start: 20231017, end: 20231021
  7. ANAPROX [Concomitant]
     Active Substance: NAPROXEN SODIUM
     Indication: Pneumonia
     Dosage: 550 MG
     Route: 065
     Dates: start: 20230528, end: 20230529
  8. ANAPROX [Concomitant]
     Active Substance: NAPROXEN SODIUM
     Dosage: 550 MG
     Route: 065
     Dates: start: 20230602, end: 20230605
  9. CODEINE [Concomitant]
     Active Substance: CODEINE
     Indication: Pneumonia
     Dosage: 20 MG
     Route: 065
     Dates: start: 20230526, end: 20230611
  10. NOXAFIL [Concomitant]
     Active Substance: POSACONAZOLE
     Indication: Fungal infection
     Dosage: 300 MG
     Route: 065
     Dates: start: 20230524, end: 20230530
  11. ALLOPURINOL [Concomitant]
     Active Substance: ALLOPURINOL
     Indication: Tumour lysis syndrome
     Dosage: 300 MG
     Route: 065
     Dates: start: 20230525, end: 20230529
  12. ALDACTONE [Concomitant]
     Active Substance: SPIRONOLACTONE
     Indication: Pulmonary oedema
     Dosage: 25 MG
     Route: 065
     Dates: start: 20230601, end: 20230612
  13. XIGDUO XR [Concomitant]
     Active Substance: DAPAGLIFLOZIN PROPANEDIOL\METFORMIN HYDROCHLORIDE
     Indication: Type 2 diabetes mellitus
     Dosage: 1 DOSAGE FORM (XR TABLET)
     Route: 065
     Dates: start: 20230621, end: 20230916
  14. XIGDUO XR [Concomitant]
     Active Substance: DAPAGLIFLOZIN PROPANEDIOL\METFORMIN HYDROCHLORIDE
     Dosage: 1 DOSAGE FORM (XR TABLET)
     Route: 065
     Dates: start: 20230711
  15. X PAIN SEMI [Concomitant]
     Indication: Abdominal pain
     Dosage: 3 DOSAGE FORM
     Route: 065
     Dates: start: 20230603, end: 20230617
  16. TRANSAMIN [Concomitant]
     Active Substance: TRANEXAMIC ACID
     Indication: Haemorrhage
     Dosage: 500 MG
     Route: 065
     Dates: start: 20230803, end: 20230807
  17. PRUCALOPRIDE SUCCINATE [Concomitant]
     Active Substance: PRUCALOPRIDE SUCCINATE
     Indication: Dyschezia
     Dosage: 1 MG
     Route: 065
     Dates: start: 20230603, end: 20230614
  18. PHAZYME [Concomitant]
     Active Substance: DIMETHICONE 410
     Indication: Dyspepsia
     Dosage: 3 DOSAGE FORM
     Route: 065
     Dates: start: 20230530, end: 20230629
  19. DIFLUCAN [Concomitant]
     Active Substance: FLUCONAZOLE
     Indication: Fungal infection
     Dosage: 200 MG
     Route: 065
     Dates: start: 20230611, end: 20230621
  20. DIFLUCAN [Concomitant]
     Active Substance: FLUCONAZOLE
     Dosage: 200 MG
     Route: 065
     Dates: start: 20230723, end: 20230802
  21. DIFLUCAN [Concomitant]
     Active Substance: FLUCONAZOLE
     Dosage: 200 MG
     Route: 065
     Dates: start: 20230803, end: 20230813
  22. DIFLUCAN [Concomitant]
     Active Substance: FLUCONAZOLE
     Dosage: 200 MG
     Route: 065
     Dates: start: 20230909, end: 20230922
  23. DIFLUCAN [Concomitant]
     Active Substance: FLUCONAZOLE
     Dosage: 200 MG
     Route: 065
     Dates: start: 20231022, end: 20231113
  24. FURIX [Concomitant]
     Indication: Pulmonary oedema
     Dosage: 40 MG, PRN
     Route: 065
     Dates: start: 20230602, end: 20230612
  25. MAGNESIUM HYDROXIDE [Concomitant]
     Active Substance: MAGNESIUM HYDROXIDE
     Indication: Dyschezia
     Dosage: 1000 MG
     Route: 065
     Dates: start: 20230530, end: 20230530
  26. MAGNESIUM HYDROXIDE [Concomitant]
     Active Substance: MAGNESIUM HYDROXIDE
     Dosage: 1500 MG
     Route: 065
     Dates: start: 20230601, end: 20230606
  27. MAGNESIUM HYDROXIDE [Concomitant]
     Active Substance: MAGNESIUM HYDROXIDE
     Dosage: 1000 MG
     Route: 065
     Dates: start: 20230612, end: 20230614
  28. AMIKACIN SULFATE [Concomitant]
     Active Substance: AMIKACIN SULFATE
     Indication: Abscess neck
     Dosage: 250 MG
     Route: 065
     Dates: start: 20230619, end: 20230622
  29. CANCIDAS [Concomitant]
     Active Substance: CASPOFUNGIN ACETATE
     Indication: Fungal infection
     Dosage: 50 MG
     Route: 065
     Dates: start: 20230602, end: 20230611
  30. LASIX [Concomitant]
     Active Substance: FUROSEMIDE
     Indication: Pulmonary oedema
     Dosage: UNK UNK, PRN (20-40)
     Route: 065
     Dates: start: 20230601, end: 20230612
  31. METOCLOPRAMIDE HYDROCHLORIDE [Concomitant]
     Active Substance: METOCLOPRAMIDE HYDROCHLORIDE
     Indication: Nausea
     Dosage: 10 MG
     Route: 065
     Dates: start: 20230603, end: 20230612
  32. METOCLOPRAMIDE HYDROCHLORIDE [Concomitant]
     Active Substance: METOCLOPRAMIDE HYDROCHLORIDE
     Dosage: 6 DOSAGE FORM
     Route: 065
     Dates: start: 20230909, end: 20230911
  33. METOCLOPRAMIDE HYDROCHLORIDE [Concomitant]
     Active Substance: METOCLOPRAMIDE HYDROCHLORIDE
     Dosage: 10 MG, PRN
     Route: 065
     Dates: start: 20231019, end: 20231019
  34. ACETYLCYSTEINE [Concomitant]
     Active Substance: ACETYLCYSTEINE
     Indication: Pneumonia
     Dosage: 1800 MG
     Route: 065
     Dates: start: 20230603, end: 20230616
  35. PENIRAMIN [Concomitant]
     Indication: Transfusion
     Dosage: 4 MG, PRN
     Route: 065
     Dates: start: 20230603, end: 20230921
  36. PENIRAMIN [Concomitant]
     Dosage: 4 MG
     Route: 065
     Dates: start: 20231030, end: 20231030
  37. PENIRAMIN [Concomitant]
     Dosage: 4 UNK (PRN)
     Route: 065
     Dates: start: 20231102, end: 20231103
  38. MYPOL [Concomitant]
     Indication: Pain in extremity
     Dosage: 3 DOSAGE FORM
     Route: 065
     Dates: start: 20230618, end: 20230618
  39. CITOPCIN [Concomitant]
     Indication: Infection
     Dosage: 1000 MG
     Route: 065
     Dates: start: 20230723, end: 20230802
  40. CITOPCIN [Concomitant]
     Dosage: 1000 MG
     Route: 065
     Dates: start: 20230803, end: 20230813
  41. CITOPCIN [Concomitant]
     Dosage: 1000 MG
     Route: 065
     Dates: start: 20230909, end: 20230922
  42. CITOPCIN [Concomitant]
     Dosage: 1000 MG
     Route: 065
     Dates: start: 20231022
  43. CITOPCIN [Concomitant]
     Dosage: 400 MG
     Route: 065
     Dates: start: 20231102, end: 20231103
  44. ALOXI [Concomitant]
     Active Substance: PALONOSETRON HYDROCHLORIDE
     Indication: Nausea
     Dosage: 0.25 MG (EOD)
     Route: 065
     Dates: start: 20230524, end: 20230528
  45. ALOXI [Concomitant]
     Active Substance: PALONOSETRON HYDROCHLORIDE
     Dosage: 0.25 MG (EOD)
     Route: 065
     Dates: start: 20230718, end: 20230722
  46. ALOXI [Concomitant]
     Active Substance: PALONOSETRON HYDROCHLORIDE
     Dosage: 0.25 MG (EOD)
     Route: 065
     Dates: start: 20230904, end: 20230908
  47. ALOXI [Concomitant]
     Active Substance: PALONOSETRON HYDROCHLORIDE
     Dosage: 0.25 MG (EOD)
     Route: 065
     Dates: start: 20231017, end: 20231021
  48. DAPAGLIFLOZIN [Concomitant]
     Active Substance: DAPAGLIFLOZIN
     Indication: Type 2 diabetes mellitus
     Dosage: 10 MG
     Route: 065
     Dates: start: 20230912
  49. DIABEX [Concomitant]
     Active Substance: METFORMIN HYDROCHLORIDE
     Indication: Type 2 diabetes mellitus
     Dosage: 250 MG
     Route: 065
     Dates: start: 20230912
  50. MEPERIDINE HYDROCHLORIDE [Concomitant]
     Active Substance: MEPERIDINE HYDROCHLORIDE
     Indication: Pain
     Dosage: 25 MG
     Route: 065
     Dates: start: 20231017, end: 20231017
  51. CEFACLOR [Concomitant]
     Active Substance: CEFACLOR
     Indication: Infection
     Dosage: 750 MG
     Route: 065
     Dates: start: 20231107, end: 20231113
  52. VENITOL [Concomitant]
     Indication: Haemorrhoids
     Dosage: 3 DOSAGE FORM
     Route: 065
     Dates: start: 20231107, end: 20231113

REACTIONS (4)
  - Sepsis [Recovered/Resolved]
  - Escherichia test positive [Recovered/Resolved]
  - Pyrexia [Recovered/Resolved]
  - Neutrophil count decreased [Unknown]

NARRATIVE: CASE EVENT DATE: 20231102
